FAERS Safety Report 16485904 (Version 1)
Quarter: 2019Q2

REPORT INFORMATION
  Report Type: Spontaneous
  Country: GB (occurrence: GB)
  Receive Date: 20190627
  Receipt Date: 20190627
  Transmission Date: 20190711
  Serious: Yes (Other)
  Sender: FDA-Public Use
  Company Number: GB-TESARO-2019-TSO02327-GB

PATIENT

DRUGS (1)
  1. ZEJULA [Suspect]
     Active Substance: NIRAPARIB
     Indication: OVARIAN CANCER
     Dosage: 100 MG, UNK
     Route: 048
     Dates: start: 20190423

REACTIONS (3)
  - Pruritus [Unknown]
  - Underdose [Unknown]
  - Rash papular [Unknown]

NARRATIVE: CASE EVENT DATE: 20190525
